APPROVED DRUG PRODUCT: NARATRIPTAN
Active Ingredient: NARATRIPTAN HYDROCHLORIDE
Strength: EQ 2.5MG BASE
Dosage Form/Route: TABLET;ORAL
Application: A091552 | Product #001
Applicant: SUN PHARMACEUTICAL INDUSTRIES LTD
Approved: Feb 14, 2011 | RLD: No | RS: No | Type: DISCN